FAERS Safety Report 7211525-8 (Version None)
Quarter: 2010Q4

REPORT INFORMATION
  Report Type: 
  Country: None (occurrence: None)
  Receive Date: 20101228
  Receipt Date: 20101216
  Transmission Date: 20110411
  Serious: Yes (Hospitalization)
  Sender: FDA-Public Use
  Company Number: 018123

PATIENT
  Sex: Female
  Weight: 40 kg

DRUGS (4)
  1. CIMZIA [Suspect]
     Indication: RHEUMATOID ARTHRITIS
     Dosage: SUBCUTANEOUS, 200 MG 1X/2 WEEKS, 2 DOSES ADMINISTERED SUBCUTANEOUS
     Route: 058
     Dates: start: 20100525, end: 20100525
  2. CIMZIA [Suspect]
     Indication: RHEUMATOID ARTHRITIS
     Dosage: SUBCUTANEOUS, 200 MG 1X/2 WEEKS, 2 DOSES ADMINISTERED SUBCUTANEOUS
     Route: 058
     Dates: start: 20100715, end: 20100729
  3. PARACETAMOL [Concomitant]
  4. NOVAMINSULFON [Concomitant]

REACTIONS (6)
  - ASTHENIA [None]
  - DIZZINESS [None]
  - MUSCULAR WEAKNESS [None]
  - MYOCARDIAL INFARCTION [None]
  - STRESS CARDIOMYOPATHY [None]
  - WEIGHT DECREASED [None]
